FAERS Safety Report 8032580 (Version 2)
Quarter: 2014Q2

REPORT INFORMATION
  Report Type: Spontaneous
  Country: US (occurrence: US)
  Receive Date: 20110527
  Receipt Date: 20140510
  Transmission Date: 20141212
  Serious: Yes (Hospitalization)
  Sender: FDA-Public Use
  Company Number: US200903003312

PATIENT
  Age: 59 Year
  Sex: Female
  Weight: 126.98 kg

DRUGS (15)
  1. BYETTA PEN DISPOSABLE [Suspect]
     Dates: start: 200801, end: 200809
  2. BYETTA PEN DISPOSABLE [Suspect]
     Dates: start: 20060526, end: 20070823
  3. EXENATIDE 5MCG PEN, DISPOSABLE DEVICE [Concomitant]
  4. CRESTOR [Concomitant]
  5. LIPITOR [Concomitant]
  6. HYZAAR [Concomitant]
  7. POTASSIUM [Concomitant]
  8. SIMVASTATIN [Concomitant]
  9. AZITHROMYCIN [Concomitant]
  10. TEMAZEPAM [Concomitant]
     Indication: INSOMNIA
  11. ASPIRIN [Concomitant]
  12. LOVENOX [Concomitant]
  13. LORCET [Concomitant]
     Indication: CHEST PAIN
  14. INSULIN [Concomitant]
     Indication: DIABETES MELLITUS
  15. DIURETICS [Concomitant]
     Indication: FLUID RETENTION

REACTIONS (6)
  - Pancreatitis [Recovered/Resolved]
  - Abdominal pain upper [Not Recovered/Not Resolved]
  - Renal failure chronic [Unknown]
  - Emotional distress [Unknown]
  - Headache [Recovered/Resolved]
  - Off label use [Recovered/Resolved]
